FAERS Safety Report 6940191-1 (Version None)
Quarter: 2010Q3

REPORT INFORMATION
  Report Type: 
  Country: None (occurrence: None)
  Receive Date: 20100825
  Receipt Date: 20100817
  Transmission Date: 20110219
  Serious: Yes (Hospitalization)
  Sender: FDA-Public Use
  Company Number: CA-ELI_LILLY_AND_COMPANY-CA201008004755

PATIENT
  Sex: Female

DRUGS (2)
  1. HUMALOG [Suspect]
     Dosage: 120 U, DAILY (1/D)
  2. HUMULIN N [Suspect]

REACTIONS (3)
  - CONFUSIONAL STATE [None]
  - DIABETES MELLITUS [None]
  - VISUAL ACUITY REDUCED [None]
